FAERS Safety Report 11694670 (Version 1)
Quarter: 2015Q4

REPORT INFORMATION
  Report Type: Spontaneous
  Country: US (occurrence: US)
  Receive Date: 20151103
  Receipt Date: 20151103
  Transmission Date: 20160304
  Serious: No
  Sender: FDA-Public Use
  Company Number: US-ABBVIE-15P-163-1343947-00

PATIENT
  Sex: Male

DRUGS (2)
  1. BIAXIN [Suspect]
     Active Substance: CLARITHROMYCIN
     Indication: PRODUCT USED FOR UNKNOWN INDICATION
     Route: 065
  2. CHANTIX [Suspect]
     Active Substance: VARENICLINE TARTRATE
     Indication: SMOKING CESSATION THERAPY
     Dosage: STANDARD
     Route: 048

REACTIONS (4)
  - Angina pectoris [Unknown]
  - Malaise [Recovered/Resolved]
  - Hypersensitivity [Unknown]
  - Syncope [Unknown]
